FAERS Safety Report 12079050 (Version 2)
Quarter: 2016Q1

REPORT INFORMATION
  Report Type: Spontaneous
  Country: US (occurrence: US)
  Receive Date: 20160216
  Receipt Date: 20160309
  Transmission Date: 20160526
  Serious: No
  Sender: FDA-Public Use
  Company Number: US-PFIZER INC-2016033478

PATIENT
  Age: 72 Year
  Sex: Female
  Weight: 58.96 kg

DRUGS (1)
  1. ADVIL [Suspect]
     Active Substance: IBUPROFEN
     Indication: ARTHRITIS
     Dosage: UNK

REACTIONS (5)
  - Product physical issue [Unknown]
  - Dysgeusia [Unknown]
  - Product use issue [Unknown]
  - Product taste abnormal [Unknown]
  - Poor quality drug administered [Unknown]
